FAERS Safety Report 23990664 (Version 1)
Quarter: 2024Q2

REPORT INFORMATION
  Report Type: Spontaneous
  Country: US (occurrence: US)
  Receive Date: 20240619
  Receipt Date: 20240619
  Transmission Date: 20240716
  Serious: No
  Sender: FDA-Public Use
  Company Number: US-BRISTOL-MYERS SQUIBB COMPANY-2024-098103

PATIENT
  Age: 70 Year
  Sex: Female
  Weight: 72.12 kg

DRUGS (11)
  1. REVLIMID [Suspect]
     Active Substance: LENALIDOMIDE
     Indication: Plasma cell myeloma
     Dosage: FREQUENCY: 28/28 DAYS
     Route: 048
     Dates: start: 20240422
  2. RESTASIS [Concomitant]
     Active Substance: CYCLOSPORINE
     Indication: Product used for unknown indication
     Dosage: 60XO.4ML
  3. DILTIAZEM HYDROCHLORIDE [Concomitant]
     Active Substance: DILTIAZEM HYDROCHLORIDE
     Indication: Product used for unknown indication
  4. OMEPRAZOLE [Concomitant]
     Active Substance: DONEPEZIL HYDROCHLORIDE\OMEPRAZOLE\OMEPRAZOLE MAGNESIUM
     Indication: Product used for unknown indication
  5. ALLEGRA ALLERGY [Concomitant]
     Active Substance: FEXOFENADINE HYDROCHLORIDE
     Indication: Product used for unknown indication
  6. IRON [Concomitant]
     Active Substance: IRON
     Indication: Product used for unknown indication
     Dosage: SLOW RELEASE
  7. LEVOTHYROXINE SODIUM [Concomitant]
     Active Substance: LEVOTHYROXINE SODIUM
     Indication: Product used for unknown indication
  8. LOSARTAN POTASSIUM [Concomitant]
     Active Substance: LOSARTAN POTASSIUM
     Indication: Product used for unknown indication
  9. NYAMYC [Concomitant]
     Active Substance: NYSTATIN
     Indication: Product used for unknown indication
     Dosage: 1 POWD
  10. ALENDRONATE SODIUM [Concomitant]
     Active Substance: ALENDRONATE SODIUM
     Indication: Product used for unknown indication
  11. ROSUVASTATIN CALCIUM [Concomitant]
     Active Substance: ROSUVASTATIN CALCIUM
     Indication: Product used for unknown indication

REACTIONS (1)
  - Headache [Unknown]
